FAERS Safety Report 8162102-6 (Version None)
Quarter: 2012Q1

REPORT INFORMATION
  Report Type: 
  Country: None (occurrence: None)
  Receive Date: 20120221
  Receipt Date: 20120210
  Transmission Date: 20120608
  Serious: Yes (Hospitalization, Other)
  Sender: FDA-Public Use
  Company Number: ADR-2011-10920

PATIENT
  Sex: Female

DRUGS (2)
  1. LIORESAL [Suspect]
     Indication: MUSCLE SPASTICITY
     Dosage: 130 MCG, DAILY, INTRATH
     Route: 037
  2. LIORESAL [Suspect]
     Indication: CEREBROVASCULAR ACCIDENT
     Dosage: 130 MCG, DAILY, INTRATH
     Route: 037

REACTIONS (4)
  - NO THERAPEUTIC RESPONSE [None]
  - PARADOXICAL DRUG REACTION [None]
  - CONDITION AGGRAVATED [None]
  - MUSCLE SPASTICITY [None]
